FAERS Safety Report 9391473 (Version 1)
Quarter: 2013Q3

REPORT INFORMATION
  Report Type: Spontaneous
  Country: DK (occurrence: DK)
  Receive Date: 20130709
  Receipt Date: 20130709
  Transmission Date: 20140515
  Serious: Yes (Death, Hospitalization)
  Sender: FDA-Public Use
  Company Number: DK-NICOBRDEVP-2013-12051

PATIENT
  Age: 79 Year
  Sex: Male

DRUGS (1)
  1. BICALUTAMIDE (UNKNOWN) [Suspect]
     Indication: PROSTATE CANCER METASTATIC
     Dosage: 150 MG, DAILY
     Route: 065
     Dates: start: 20101011, end: 20130523

REACTIONS (7)
  - Hepatic failure [Fatal]
  - Endotracheal intubation [Fatal]
  - Sepsis [Fatal]
  - Circulatory collapse [Fatal]
  - Renal failure acute [Fatal]
  - Haemorrhagic diathesis [Fatal]
  - Multi-organ failure [Fatal]
